FAERS Safety Report 8561535-3 (Version None)
Quarter: 2012Q3

REPORT INFORMATION
  Report Type: 
  Country: None (occurrence: None)
  Receive Date: 20120802
  Receipt Date: 20120725
  Transmission Date: 20120928
  Serious: Yes (Life-Threatening, Hospitalization)
  Sender: FDA-Public Use
  Company Number: TW-CELGENEUS-153-21880-12061323

PATIENT
  Sex: Male
  Weight: 69.5 kg

DRUGS (91)
  1. ACERTIL [Concomitant]
     Indication: HYPERTENSION
     Dosage: 5 MILLIGRAM
     Route: 048
     Dates: start: 20110531
  2. ALUMINUM HYDROXIDE AND MAGNESIUM TRISILICATE [Concomitant]
     Route: 048
     Dates: start: 20120611, end: 20120613
  3. ROLIKAN [Concomitant]
     Dosage: 4 AMP
     Route: 041
     Dates: start: 20120610, end: 20120610
  4. HEPARIN [Concomitant]
     Route: 041
     Dates: start: 20120610, end: 20120611
  5. LASIX [Concomitant]
     Dosage: 2 AMP
     Route: 041
     Dates: start: 20120610, end: 20120611
  6. LASIX [Concomitant]
     Dosage: 1 AMP
     Route: 041
     Dates: start: 20120611, end: 20120611
  7. MIDAZOLAM HCL [Concomitant]
     Dosage: 1 AMP
     Route: 041
     Dates: start: 20120610, end: 20120611
  8. LIPITOR [Concomitant]
     Dosage: 1 TAB
     Route: 048
     Dates: start: 20120610, end: 20120611
  9. FAMO [Concomitant]
     Dosage: 1 TAB
     Route: 065
     Dates: start: 20120611, end: 20120625
  10. NAPROXEN [Concomitant]
     Dosage: 1 TAB
     Route: 065
     Dates: start: 20120612, end: 20120613
  11. TRANSAMINE CAP [Concomitant]
     Dosage: 1 AMP
     Route: 041
     Dates: start: 20120617, end: 20120622
  12. TRANSAMINE CAP [Concomitant]
     Dosage: 2 CAP
     Route: 048
     Dates: start: 20120626, end: 20120627
  13. ISMO [Concomitant]
     Dosage: 40 MILLIGRAM
     Route: 048
     Dates: start: 20120620, end: 20120620
  14. MUACTION [Concomitant]
     Indication: BONE PAIN
     Dosage: 200 MILLIGRAM
     Route: 048
     Dates: start: 20110531
  15. DORISON [Concomitant]
     Indication: MULTIPLE MYELOMA
     Dosage: 4 MILLIGRAM
     Route: 048
     Dates: start: 20110531
  16. STROCAIN [Concomitant]
     Indication: PROPHYLAXIS
     Dosage: 3 TABLET
     Route: 048
     Dates: start: 20111213
  17. DEPYRETIN [Concomitant]
     Dosage: 2000 MILLIGRAM
     Route: 048
     Dates: start: 20120611, end: 20120625
  18. MIDAZOLAM HCL [Concomitant]
     Dosage: 24 AMP
     Route: 041
     Dates: start: 20120610, end: 20120611
  19. PLASMANATE [Concomitant]
     Dosage: 4 BOT
     Route: 023
     Dates: start: 20120611, end: 20120612
  20. MOPRIDE [Concomitant]
     Dosage: 1 TAB
     Route: 048
     Dates: start: 20120617, end: 20120622
  21. MEPTIN [Concomitant]
     Dosage: 1 TAB
     Route: 048
     Dates: start: 20120629, end: 20120704
  22. DECADRON PHOSPHATE [Concomitant]
     Dosage: 20 MILLIGRAM
     Route: 065
     Dates: start: 20120622, end: 20120622
  23. PLATELETS [Concomitant]
     Indication: PANCYTOPENIA
     Route: 041
  24. BONEFOS [Concomitant]
     Indication: MULTIPLE MYELOMA
     Dosage: 800 MILLIGRAM
     Route: 048
     Dates: start: 20110531
  25. BROWN MIXTURE [Concomitant]
     Indication: COUGH
     Route: 048
     Dates: start: 20120414, end: 20120514
  26. PLAVIX [Concomitant]
     Route: 065
  27. LOPERAM [Concomitant]
     Dosage: 6 MILLIGRAM
     Route: 048
     Dates: start: 20120609, end: 20120611
  28. ROLIKAN [Concomitant]
     Route: 041
     Dates: start: 20120609, end: 20120610
  29. LACTATED RINGER'S [Concomitant]
     Route: 065
     Dates: start: 20120608, end: 20120611
  30. LACTATED RINGER'S [Concomitant]
     Route: 065
     Dates: start: 20120619, end: 20120620
  31. LASIX [Concomitant]
     Route: 048
     Dates: start: 20120618, end: 20120620
  32. MIDAZOLAM HCL [Concomitant]
     Dosage: 24 AMP
     Route: 041
     Dates: start: 20120610, end: 20120611
  33. LIPITOR [Concomitant]
     Dosage: 0.5 TAB
     Route: 048
     Dates: start: 20120614, end: 20120628
  34. FAMO [Concomitant]
     Dosage: 1 TAB
     Route: 065
     Dates: start: 20120629, end: 20120704
  35. NITROSTAT [Concomitant]
     Route: 060
     Dates: start: 20120620, end: 20120620
  36. RED BLOOD CELLS [Concomitant]
     Route: 065
     Dates: start: 20120609
  37. ZOMETA [Concomitant]
     Route: 065
  38. REVLIMID [Suspect]
     Route: 048
     Dates: start: 20110531
  39. ASPIRIN [Concomitant]
     Route: 048
     Dates: start: 20120629, end: 20120704
  40. LASIX [Concomitant]
     Dosage: 1 AMP
     Route: 041
     Dates: start: 20120622, end: 20120622
  41. LASIX [Concomitant]
     Route: 048
     Dates: start: 20120628, end: 20120630
  42. FAMO [Concomitant]
     Dosage: 1 TAB
     Route: 065
     Dates: start: 20120611, end: 20120612
  43. CALGLON [Concomitant]
     Dosage: 1 AMP
     Route: 041
     Dates: start: 20120614, end: 20120615
  44. COMBIVENT [Concomitant]
     Dosage: 1 VIAL
     Dates: start: 20120620, end: 20120620
  45. ALLERMIN [Concomitant]
     Dosage: 1 AMP
     Route: 041
     Dates: start: 20120609, end: 20120613
  46. AMARYL [Concomitant]
     Indication: DIABETES MELLITUS
     Dosage: 1 MILLIGRAM
     Route: 048
     Dates: start: 20111101
  47. ALUMINUM HYDROXIDE AND MAGNESIUM TRISILICATE [Concomitant]
     Route: 048
     Dates: start: 20120622, end: 20120623
  48. POTASSIUM CHLORIDE [Concomitant]
     Dosage: 10 CC
     Route: 041
     Dates: start: 20120609, end: 20120610
  49. ROLIKAN [Concomitant]
     Dosage: 2 AMP
     Route: 041
     Dates: start: 20120610, end: 20120610
  50. DEPYRETIN [Concomitant]
     Dosage: 2000 MILLIGRAM
     Route: 048
     Dates: start: 20120625, end: 20120630
  51. VOLUVEN [Concomitant]
     Route: 041
     Dates: start: 20120608, end: 20120611
  52. LASIX [Concomitant]
     Dosage: 1 AMP
     Route: 041
     Dates: start: 20120612, end: 20120613
  53. LASIX [Concomitant]
     Dosage: 2 AMP
     Route: 041
     Dates: start: 20120620, end: 20120622
  54. POTASSIUM PHOSPHATES [Concomitant]
     Dosage: 20 CC
     Route: 041
     Dates: start: 20120611, end: 20120612
  55. TRANSAMINE CAP [Concomitant]
     Dosage: 1 CAP
     Route: 048
     Dates: start: 20120626, end: 20120629
  56. XANTHIUM [Concomitant]
     Dosage: 1 CAP
     Route: 048
     Dates: start: 20120620, end: 20120621
  57. NITROGLYCERIN [Concomitant]
     Dosage: 10 AMP
     Route: 065
     Dates: start: 20120620, end: 20120620
  58. NITROGLYCERIN [Concomitant]
     Dosage: 10 AMP
     Route: 065
     Dates: start: 20120620, end: 20120621
  59. VALTREX [Concomitant]
     Indication: HERPES SIMPLEX
     Dosage: 1000 MILLIGRAM
     Route: 048
     Dates: start: 20110531
  60. ASPIRIN [Concomitant]
     Indication: PROPHYLAXIS
     Route: 065
  61. ASPIRIN [Concomitant]
     Route: 048
     Dates: start: 20120628, end: 20120630
  62. ALLOPURINOL [Concomitant]
     Dosage: 1 TAB
     Route: 048
     Dates: start: 20120609, end: 20120610
  63. SOLU-CORTEF [Concomitant]
     Route: 041
     Dates: start: 20120620, end: 20120621
  64. DEPYRETIN [Concomitant]
     Dosage: 2000 MILLIGRAM
     Route: 048
     Dates: start: 20120610, end: 20120611
  65. LIPITOR [Concomitant]
     Dosage: 1 TAB
     Route: 048
     Dates: start: 20120610, end: 20120614
  66. PRECEDEX [Concomitant]
     Route: 041
     Dates: start: 20120611, end: 20120612
  67. PRECEDEX [Concomitant]
     Route: 041
     Dates: start: 20120611, end: 20120612
  68. MEPTIN [Concomitant]
     Dosage: 1 TAB
     Route: 048
     Dates: start: 20120620, end: 20120621
  69. DECADRON PHOSPHATE [Concomitant]
     Route: 065
     Dates: start: 20120620, end: 20120621
  70. PULMICORT [Concomitant]
     Dosage: 1 BG
     Route: 055
     Dates: start: 20120620, end: 20120620
  71. REVLIMID [Suspect]
     Indication: MULTIPLE MYELOMA
     Dosage: 20 MILLIGRAM
     Route: 048
     Dates: start: 20120529, end: 20120608
  72. PLAVIX [Concomitant]
     Dosage: 1 TAB
     Route: 048
     Dates: start: 20120614, end: 20120614
  73. DEPYRETIN [Concomitant]
     Dosage: 2000 MILLIGRAM
     Route: 048
     Dates: start: 20120629, end: 20120704
  74. LASIX [Concomitant]
     Dosage: 1 AMP
     Route: 041
     Dates: start: 20120613, end: 20120613
  75. LASIX [Concomitant]
     Dosage: 1 AMP
     Route: 041
     Dates: start: 20120613, end: 20120614
  76. LASIX [Concomitant]
     Dosage: 1 AMP
     Route: 041
     Dates: start: 20120622, end: 20120628
  77. LASIX [Concomitant]
     Route: 048
     Dates: start: 20120629, end: 20120704
  78. VOLULYTE [Concomitant]
     Route: 023
     Dates: start: 20120611, end: 20120612
  79. ALLERMIN [Concomitant]
     Dosage: 1 AMP
     Route: 041
     Dates: start: 20120615, end: 20120620
  80. ULTRACET [Concomitant]
     Route: 065
  81. ANZEPAM [Concomitant]
     Indication: INSOMNIA
     Route: 048
     Dates: start: 20111213
  82. ALUMINUM HYDROXIDE AND MAGNESIUM TRISILICATE [Concomitant]
     Route: 048
     Dates: start: 20120609, end: 20120611
  83. ALUMINUM HYDROXIDE AND MAGNESIUM TRISILICATE [Concomitant]
     Route: 048
     Dates: start: 20120622, end: 20120625
  84. SOLU-CORTEF [Concomitant]
     Route: 041
     Dates: start: 20120610, end: 20120611
  85. HEPARIN [Concomitant]
     Route: 041
     Dates: start: 20120610, end: 20120620
  86. LASIX [Concomitant]
     Dosage: 3 AMP
     Route: 041
     Dates: start: 20120610, end: 20120610
  87. LASIX [Concomitant]
     Dosage: 2 AMP
     Route: 041
     Dates: start: 20120613, end: 20120614
  88. LASIX [Concomitant]
     Dosage: 1 AMP
     Route: 041
     Dates: start: 20120620, end: 20120620
  89. FAMO [Concomitant]
     Dosage: 1 TAB
     Route: 065
     Dates: start: 20120625, end: 20120630
  90. ATIVAN [Concomitant]
  91. DECADRON PHOSPHATE [Concomitant]
     Dosage: 20 MILLIGRAM
     Route: 065
     Dates: start: 20120620, end: 20120622

REACTIONS (1)
  - SEPTIC SHOCK [None]
